FAERS Safety Report 8971612 (Version 1)
Quarter: 2012Q4

REPORT INFORMATION
  Report Type: 
  Country: CA (occurrence: CA)
  Receive Date: 20121217
  Receipt Date: 20121217
  Transmission Date: 20130627
  Serious: Yes (Life-Threatening, Hospitalization)
  Sender: FDA-Public Use
  Company Number: CA-B.I. PHARMACEUTICALS,INC./RIDGEFIELD-2012-CN-02574CN

PATIENT
  Age: 76 Year
  Sex: Female
  Weight: 59 kg

DRUGS (6)
  1. PRADAX [Suspect]
     Dosage: 220 mg
     Route: 048
  2. ARANESP [Concomitant]
     Route: 042
  3. HYZAAR [Concomitant]
  4. METOPROLOL [Concomitant]
  5. PROPAFENONE [Concomitant]
  6. SPIRONOLACTONE [Concomitant]

REACTIONS (3)
  - Pericardial drainage [Unknown]
  - Pericardial haemorrhage [Unknown]
  - Renal failure acute [Unknown]
